FAERS Safety Report 8330892-5 (Version None)
Quarter: 2012Q2

REPORT INFORMATION
  Report Type: 
  Country: None (occurrence: None)
  Receive Date: 20120502
  Receipt Date: 20120403
  Transmission Date: 20120825
  Serious: No
  Sender: FDA-Public Use
  Company Number: US-AMGEN-USASP2012021247

PATIENT
  Age: 68 Year
  Sex: Female

DRUGS (2)
  1. ENBREL [Suspect]
     Indication: RHEUMATOID ARTHRITIS
     Dosage: 50 MG, QWK
     Dates: start: 20061211
  2. TREXALL [Concomitant]
     Dosage: 5 MG, UNK

REACTIONS (2)
  - INJECTION SITE PAIN [None]
  - GASTROOESOPHAGEAL REFLUX DISEASE [None]
